FAERS Safety Report 7909586-3 (Version None)
Quarter: 2011Q4

REPORT INFORMATION
  Report Type: 
  Country: None (occurrence: None)
  Receive Date: 20111111
  Receipt Date: 20110728
  Transmission Date: 20120403
  Serious: No
  Sender: FDA-Public Use
  Company Number: US-BAYER-2011-078080

PATIENT
  Age: 33 Year
  Sex: Female
  Weight: 58 kg

DRUGS (1)
  1. ALEVE (CAPLET) [Suspect]
     Dosage: UNK UNK, ONCE
     Dates: start: 20110628, end: 20110628

REACTIONS (1)
  - BACK PAIN [None]
